FAERS Safety Report 19394642 (Version 1)
Quarter: 2021Q2

REPORT INFORMATION
  Report Type: Report from Study
  Country: US (occurrence: US)
  Receive Date: 20210609
  Receipt Date: 20210609
  Transmission Date: 20210717
  Serious: Yes (Other)
  Sender: FDA-Public Use
  Company Number: US-MYLANLABS-2021M1033705

PATIENT
  Sex: Female

DRUGS (1)
  1. METHOTREXATE. [Suspect]
     Active Substance: METHOTREXATE
     Indication: ABORTION INDUCED
     Dosage: RECEIVED METHOTREXATE AT 6 WEEKS OF GESTATION
     Route: 065

REACTIONS (3)
  - Off label use [Unknown]
  - Induced abortion failed [Unknown]
  - Exposure during pregnancy [Unknown]
